FAERS Safety Report 8343123-7 (Version None)
Quarter: 2012Q2

REPORT INFORMATION
  Report Type: 
  Country: None (occurrence: None)
  Receive Date: 20120508
  Receipt Date: 20120426
  Transmission Date: 20120825
  Serious: Yes (Other)
  Sender: FDA-Public Use
  Company Number: BR-JNJFOC-20120506660

PATIENT
  Sex: Male
  Weight: 42 kg

DRUGS (4)
  1. WARFARIN SODIUM [Concomitant]
     Indication: THROMBOSIS
  2. DIPYRONE TAB [Concomitant]
     Indication: PAIN IN EXTREMITY
     Route: 048
     Dates: start: 20120229
  3. NAPROXEN [Suspect]
     Indication: THROMBOSIS
  4. XARELTO [Suspect]
     Indication: THROMBOSIS
     Route: 048
     Dates: start: 20120425

REACTIONS (1)
  - THROMBOSIS [None]
